FAERS Safety Report 18253686 (Version 2)
Quarter: 2020Q3

REPORT INFORMATION
  Report Type: Report from Study
  Country: ZA (occurrence: ZA)
  Receive Date: 20200910
  Receipt Date: 20200917
  Transmission Date: 20201103
  Serious: Yes (Hospitalization)
  Sender: FDA-Public Use
  Company Number: ZA-PFIZER INC-2020029482

PATIENT
  Age: 66 Year
  Sex: Male
  Weight: 123 kg

DRUGS (24)
  1. MYPROCAM ER [Concomitant]
     Indication: RHEUMATOID ARTHRITIS
     Dosage: 15 MG, DAILY
     Route: 048
     Dates: start: 20170124
  2. FERROUS SULFATE. [Concomitant]
     Active Substance: FERROUS SULFATE
     Indication: ANAEMIA
     Dosage: 75 MG, 2X/DAY
     Route: 048
     Dates: start: 201701
  3. CLOPAMON [Concomitant]
     Active Substance: METOCLOPRAMIDE
     Indication: PEPTIC ULCER
     Dosage: 10 MG, 3X/DAY
     Route: 048
     Dates: start: 2007
  4. LYRICA [Concomitant]
     Active Substance: PREGABALIN
     Indication: ARTHRALGIA
     Dosage: 175 MG, DAILY
     Route: 048
     Dates: start: 2015
  5. VITAL MULTIVITAMIN [Concomitant]
     Indication: SUPPLEMENTATION THERAPY
     Dosage: 1 DF, DAILY
     Route: 048
     Dates: start: 2010
  6. SPIRACTIN [Concomitant]
     Indication: CARDIAC FAILURE CONGESTIVE
     Dosage: 25 MG, DAILY
     Route: 048
     Dates: start: 2012
  7. TRAMAHEXAL [Concomitant]
     Active Substance: TRAMADOL HYDROCHLORIDE
     Indication: RHEUMATOID ARTHRITIS
     Dosage: 150 MG, 2X/DAY
     Route: 048
     Dates: start: 201603
  8. SALAZOPYRIN [Suspect]
     Active Substance: SULFASALAZINE
     Indication: RHEUMATOID ARTHRITIS
     Dosage: 6 G, DAILY
     Route: 048
     Dates: start: 20191023
  9. PREDNISONE. [Concomitant]
     Active Substance: PREDNISONE
     Indication: RHEUMATOID ARTHRITIS
     Dosage: 5 MG, 2X/DAY
     Route: 048
     Dates: start: 20161214
  10. DEPRAMIL [Concomitant]
     Active Substance: CITALOPRAM HYDROBROMIDE
     Indication: DEPRESSION
     Dosage: 8 MG, DAILY
     Route: 048
     Dates: start: 2005
  11. NEX [NALOXONE HYDROCHLORIDE] [Concomitant]
     Indication: PEPTIC ULCER
     Dosage: 40 MG, DAILY
     Route: 048
     Dates: start: 2013
  12. MOVICOL [Concomitant]
     Active Substance: POLYETHYLENE GLYCOL 3350\POTASSIUM CHLORIDE\SODIUM BICARBONATE\SODIUM CHLORIDE
     Indication: DIVERTICULUM
     Dosage: 1 SACHET, DAILY
     Route: 048
     Dates: start: 2007
  13. ZOPICLONE [Concomitant]
     Active Substance: ZOPICLONE
     Indication: INSOMNIA
     Dosage: 7.5 MG, DAILY
     Route: 048
     Dates: start: 2005
  14. PLENISH?K [Concomitant]
     Active Substance: POTASSIUM CHLORIDE
     Indication: MUSCLE SPASMS
     Dosage: 1 DF, DAILY
     Route: 048
     Dates: start: 20191220
  15. CALCIFEROL [Concomitant]
     Indication: SUPPLEMENTATION THERAPY
     Dosage: 50000 IU, WEEKLY
     Route: 048
     Dates: start: 2007
  16. TOFACITINIB CITRATE [Suspect]
     Active Substance: TOFACITINIB CITRATE
     Indication: RHEUMATOID ARTHRITIS
     Dosage: 5 MG, 2X/DAY
     Route: 048
     Dates: start: 20160419
  17. DISPRIN [Concomitant]
     Active Substance: ASPIRIN
     Indication: CORONARY ARTERY DISEASE
     Dosage: 1 DF, DAILY
     Route: 048
     Dates: start: 2013
  18. DIPROGENTA [Concomitant]
     Active Substance: BETAMETHASONE DIPROPIONATE\GENTAMICIN SULFATE
     Indication: MUCOSAL INFLAMMATION
     Dosage: 1 APPLICATION PRN
     Route: 045
     Dates: start: 20180101
  19. METHOTREXATE. [Concomitant]
     Active Substance: METHOTREXATE
     Indication: RHEUMATOID ARTHRITIS
     Dosage: 25 MG, WEEKLY
     Route: 048
     Dates: start: 20180328
  20. TRAMACET [Concomitant]
     Active Substance: ACETAMINOPHEN\TRAMADOL
     Indication: RHEUMATOID ARTHRITIS
     Dosage: 150 MG, PRN
     Route: 048
     Dates: start: 2008
  21. ASPAVOR [Concomitant]
     Active Substance: ATORVASTATIN
     Indication: DYSLIPIDAEMIA
     Dosage: 20 MG, DAILY
     Route: 048
     Dates: start: 2014
  22. LASIX [Concomitant]
     Active Substance: FUROSEMIDE
     Indication: CARDIAC FAILURE CONGESTIVE
     Dosage: 60 MG, DAILY
     Route: 048
     Dates: start: 2012
  23. FOLIC ACID. [Concomitant]
     Active Substance: FOLIC ACID
     Indication: RHEUMATOID ARTHRITIS
     Dosage: 1 DF, DAILY
     Route: 048
     Dates: start: 2015
  24. UNIPHYL [Concomitant]
     Active Substance: THEOPHYLLINE ANHYDROUS
     Indication: ASTHMA
     Dosage: 200 MG, 2X/DAY
     Route: 048
     Dates: start: 1996

REACTIONS (1)
  - Hypoglycaemia [Recovered/Resolved]

NARRATIVE: CASE EVENT DATE: 20191111
